FAERS Safety Report 13036567 (Version 2)
Quarter: 2016Q4

REPORT INFORMATION
  Report Type: Report from Study
  Country: US (occurrence: US)
  Receive Date: 20161216
  Receipt Date: 20161221
  Transmission Date: 20170207
  Serious: Yes (Death)
  Sender: FDA-Public Use
  Company Number: PHEH2013US022278

PATIENT
  Age: 77 Year
  Sex: Female

DRUGS (1)
  1. SANDOSTATIN LAR DEPOT [Suspect]
     Active Substance: OCTREOTIDE ACETATE
     Indication: PRODUCT USED FOR UNKNOWN INDICATION
     Dosage: 20 MG, UNK
     Route: 058
     Dates: start: 20160630, end: 20160901

REACTIONS (2)
  - Death [Fatal]
  - Headache [Unknown]

NARRATIVE: CASE EVENT DATE: 20161028
